FAERS Safety Report 8535347-0 (Version None)
Quarter: 2012Q3

REPORT INFORMATION
  Report Type: 
  Country: None (occurrence: None)
  Receive Date: 20120725
  Receipt Date: 20120717
  Transmission Date: 20120928
  Serious: No
  Sender: FDA-Public Use
  Company Number: US-BIOGENIDEC-2012BI025327

PATIENT
  Sex: Female

DRUGS (1)
  1. TYSABRI [Suspect]
     Indication: MULTIPLE SCLEROSIS
     Route: 042
     Dates: start: 20110913, end: 20120705

REACTIONS (15)
  - MIDDLE INSOMNIA [None]
  - HYPERHIDROSIS [None]
  - INFLUENZA LIKE ILLNESS [None]
  - MIGRAINE [None]
  - DYSPNOEA [None]
  - FALL [None]
  - BACK PAIN [None]
  - HEADACHE [None]
  - PALPITATIONS [None]
  - NIGHTMARE [None]
  - VULVOVAGINAL MYCOTIC INFECTION [None]
  - OEDEMA PERIPHERAL [None]
  - TREMOR [None]
  - URINARY TRACT INFECTION [None]
  - INITIAL INSOMNIA [None]
